FAERS Safety Report 9393672 (Version 1)
Quarter: 2013Q3

REPORT INFORMATION
  Report Type: Spontaneous
  Country: TR (occurrence: None)
  Receive Date: 20130705
  Receipt Date: 20130705
  Transmission Date: 20140515
  Serious: Yes (Hospitalization, Disabling)
  Sender: FDA-Public Use
  Company Number: 2013P1010827

PATIENT
  Age: 9 Year
  Sex: Male

DRUGS (2)
  1. ISONIAZID [Suspect]
     Indication: TUBERCULIN TEST POSITIVE
  2. COLCHICINE [Concomitant]

REACTIONS (3)
  - Abasia [None]
  - Haemoglobin decreased [None]
  - Complex regional pain syndrome [None]
